FAERS Safety Report 8267423-4 (Version None)
Quarter: 2012Q2

REPORT INFORMATION
  Report Type: 
  Country: None (occurrence: None)
  Receive Date: 20120409
  Receipt Date: 20120403
  Transmission Date: 20120825
  Serious: Yes (Hospitalization)
  Sender: FDA-Public Use
  Company Number: PHEH2012US007265

PATIENT
  Sex: Female

DRUGS (1)
  1. EXTAVIA [Suspect]
     Dosage: 0.3 ML, QOD, (EVERY OTHER DAY)
     Route: 058

REACTIONS (2)
  - GASTROINTESTINAL INFLAMMATION [None]
  - ABDOMINAL PAIN UPPER [None]
